FAERS Safety Report 4824683-7 (Version None)
Quarter: 2005Q4

REPORT INFORMATION
  Report Type: 
  Country: None (occurrence: None)
  Receive Date: 20051012
  Receipt Date: 20050825
  Transmission Date: 20060501
  Serious: No
  Sender: FDA-Public Use
  Company Number: 2005S1000184

PATIENT
  Age: 29 Year
  Weight: 41 kg

DRUGS (1)
  1. CUBICIN [Suspect]
     Indication: STAPHYLOCOCCAL INFECTION
     Dosage: 180 MG; Q48H
     Dates: start: 20050727, end: 20050806

REACTIONS (1)
  - MYALGIA [None]
